FAERS Safety Report 15691297 (Version 3)
Quarter: 2019Q1

REPORT INFORMATION
  Report Type: Spontaneous
  Country: US (occurrence: US)
  Receive Date: 20181205
  Receipt Date: 20190301
  Transmission Date: 20190417
  Serious: No
  Sender: FDA-Public Use
  Company Number: US-SA-2018SA330849

PATIENT
  Age: 67 Year
  Sex: Female

DRUGS (2)
  1. PRALUENT [Suspect]
     Active Substance: ALIROCUMAB
     Indication: HYPERCHOLESTEROLAEMIA
  2. PRALUENT [Suspect]
     Active Substance: ALIROCUMAB
     Indication: CORONARY ANGIOPLASTY
     Dosage: 75 MG, QOW
     Route: 058
     Dates: start: 20180521

REACTIONS (3)
  - Product use issue [Unknown]
  - Influenza [Unknown]
  - Therapeutic response decreased [Unknown]

NARRATIVE: CASE EVENT DATE: 201805
